FAERS Safety Report 24908782 (Version 2)
Quarter: 2025Q1

REPORT INFORMATION
  Report Type: Spontaneous
  Country: IN (occurrence: IN)
  Receive Date: 20250131
  Receipt Date: 20250214
  Transmission Date: 20250409
  Serious: Yes (Other)
  Sender: ABBVIE
  Company Number: US-ABBVIE-6110477

PATIENT

DRUGS (1)
  1. OZURDEX [Suspect]
     Active Substance: DEXAMETHASONE
     Indication: Product used for unknown indication
     Route: 047

REACTIONS (4)
  - Endophthalmitis [Unknown]
  - Retinal vein occlusion [Unknown]
  - Hypopyon [Unknown]
  - Macular oedema [Not Recovered/Not Resolved]
